FAERS Safety Report 7724101-5 (Version None)
Quarter: 2011Q3

REPORT INFORMATION
  Report Type: 
  Country: None (occurrence: None)
  Receive Date: 20110901
  Receipt Date: 20110824
  Transmission Date: 20111222
  Serious: Yes (Hospitalization)
  Sender: FDA-Public Use
  Company Number: US-PURDUE-USA-2011-0074302

PATIENT
  Age: 64 Year
  Sex: Male
  Weight: 85.261 kg

DRUGS (2)
  1. ATIVAN [Concomitant]
     Indication: ANXIETY
     Dosage: 2 MG, UNK
  2. OXYCONTIN [Suspect]
     Indication: ARTHRALGIA
     Dosage: 10 MG, Q12H
     Dates: start: 20050101

REACTIONS (2)
  - TINNITUS [None]
  - HIP ARTHROPLASTY [None]
